FAERS Safety Report 9639737 (Version 1)
Quarter: 2013Q4

REPORT INFORMATION
  Report Type: Spontaneous
  Country: US (occurrence: None)
  Receive Date: 20131021
  Receipt Date: 20131021
  Transmission Date: 20140711
  Serious: Yes (Life-Threatening, Other)
  Sender: FDA-Public Use
  Company Number: None

PATIENT
  Age: 34 Year
  Sex: Male

DRUGS (1)
  1. ENALAPRIL [Suspect]
     Indication: HYPERTENSION
     Route: 048
     Dates: start: 20130918, end: 20131017

REACTIONS (6)
  - Headache [None]
  - Fear [None]
  - Product substitution issue [None]
  - Accelerated hypertension [None]
  - Drug ineffective [None]
  - Product quality issue [None]
